FAERS Safety Report 7012043-2 (Version None)
Quarter: 2010Q3

REPORT INFORMATION
  Report Type: 
  Country: None (occurrence: None)
  Receive Date: 20100924
  Receipt Date: 20100916
  Transmission Date: 20110219
  Serious: No
  Sender: FDA-Public Use
  Company Number: 2009BI035941

PATIENT
  Age: 38 Year
  Sex: Female

DRUGS (3)
  1. TYSABRI [Suspect]
     Indication: MULTIPLE SCLEROSIS
     Route: 042
     Dates: start: 20091014
  2. TYLENOL [Concomitant]
     Indication: PREMEDICATION
     Dates: start: 20091014
  3. BENADRYL [Concomitant]
     Indication: PREMEDICATION
     Dates: start: 20091014

REACTIONS (6)
  - BACK PAIN [None]
  - BALANCE DISORDER [None]
  - BLOOD POTASSIUM DECREASED [None]
  - HYPERTENSION [None]
  - POSTURE ABNORMAL [None]
  - SOMNOLENCE [None]
